FAERS Safety Report 11434517 (Version 1)
Quarter: 2015Q3

REPORT INFORMATION
  Report Type: Spontaneous
  Country: US (occurrence: None)
  Receive Date: 20150828
  Receipt Date: 20150828
  Transmission Date: 20151125
  Serious: Yes (Other)
  Sender: FDA-Public Use
  Company Number: None

PATIENT
  Age: 79 Year
  Sex: Female

DRUGS (1)
  1. FORTEO [Suspect]
     Active Substance: TERIPARATIDE
     Indication: OSTEOPOROSIS
     Dosage: 20 MCG  ONCE DAILY  SUBCUTANEOUS
     Route: 058
     Dates: start: 201504, end: 20150712

REACTIONS (2)
  - Lip exfoliation [None]
  - Oral mucosal exfoliation [None]

NARRATIVE: CASE EVENT DATE: 201508
